FAERS Safety Report 4463453-9 (Version None)
Quarter: 2004Q3

REPORT INFORMATION
  Report Type: 
  Country: None (occurrence: None)
  Receive Date: 20040928
  Receipt Date: 20040913
  Transmission Date: 20050211
  Serious: Yes (Hospitalization)
  Sender: FDA-Public Use
  Company Number: S04-USA-06202-01

PATIENT
  Sex: Female

DRUGS (1)
  1. LEXAPRO [Suspect]
     Indication: NERVOUSNESS
     Dosage: 10 MG QD PO
     Route: 048

REACTIONS (1)
  - DIARRHOEA [None]
